FAERS Safety Report 23050356 (Version 1)
Quarter: 2023Q4

REPORT INFORMATION
  Report Type: Spontaneous
  Country: US (occurrence: US)
  Receive Date: 20231010
  Receipt Date: 20231010
  Transmission Date: 20240109
  Serious: Yes (Hospitalization, Other)
  Sender: FDA-Public Use
  Company Number: US-BRISTOL-MYERS SQUIBB COMPANY-2023-142170

PATIENT
  Age: 79 Year
  Sex: Male
  Weight: 71.67 kg

DRUGS (1)
  1. REVLIMID [Suspect]
     Active Substance: LENALIDOMIDE
     Indication: Product used for unknown indication
     Dates: start: 202201

REACTIONS (4)
  - Post procedural infection [Unknown]
  - Fall [Unknown]
  - Traumatic fracture [Unknown]
  - Arthropathy [Unknown]

NARRATIVE: CASE EVENT DATE: 20230101
